FAERS Safety Report 6437461-2 (Version None)
Quarter: 2009Q4

REPORT INFORMATION
  Report Type: 
  Country: None (occurrence: None)
  Receive Date: 20091112
  Receipt Date: 20091029
  Transmission Date: 20100525
  Serious: Yes (Other)
  Sender: FDA-Public Use
  Company Number: PHHY2008JP03632

PATIENT
  Sex: Female
  Weight: 41 kg

DRUGS (4)
  1. ZOMETA [Suspect]
     Indication: METASTASES TO BONE
     Dosage: 3 MG, ONCE/SINGLE
     Route: 042
     Dates: start: 20060731, end: 20060731
  2. ZOMETA [Suspect]
     Dosage: 4 MG, QMO
     Route: 042
     Dates: start: 20060828, end: 20070604
  3. AREDIA [Suspect]
     Indication: METASTASES TO BONE
     Dosage: 30 MG, ONCE/SINGLE
     Route: 042
     Dates: start: 20060306, end: 20060306
  4. TAXOL [Concomitant]
     Dosage: UNK DOSE/WEEKLY
     Dates: start: 20060515

REACTIONS (10)
  - FEELING ABNORMAL [None]
  - GINGIVAL ERYTHEMA [None]
  - GINGIVAL SWELLING [None]
  - MOUTH ULCERATION [None]
  - ORAL DISCHARGE [None]
  - ORAL DISORDER [None]
  - ORAL PAIN [None]
  - OSTEOMYELITIS [None]
  - PAIN IN JAW [None]
  - TOOTHACHE [None]
